FAERS Safety Report 8173117-6 (Version None)
Quarter: 2012Q1

REPORT INFORMATION
  Report Type: 
  Country: None (occurrence: None)
  Receive Date: 20120229
  Receipt Date: 20111025
  Transmission Date: 20120608
  Serious: No
  Sender: FDA-Public Use
  Company Number: US-GLAXOSMITHKLINE-A0515596A

PATIENT
  Sex: Female

DRUGS (18)
  1. SYNTHROID [Concomitant]
  2. UNSPECIFIED MEDICATION [Concomitant]
  3. UNSPECIFIED MEDICATION [Concomitant]
  4. IMITREX [Suspect]
     Indication: MIGRAINE
     Dosage: 1INJ AS REQUIRED
     Route: 058
  5. ALTACE [Concomitant]
  6. NEXIUM [Concomitant]
  7. VITAMIN TAB [Concomitant]
  8. METOCLOPRAMIDE [Concomitant]
  9. INSULIN [Concomitant]
  10. CLONOPIN [Concomitant]
  11. CRESTOR [Concomitant]
  12. CYTOTEC [Concomitant]
  13. EFFEXOR [Concomitant]
  14. REGLAN [Concomitant]
  15. GSK AUTOINJECTOR [Suspect]
     Indication: PRODUCT USED FOR UNKNOWN INDICATION
     Route: 058
  16. BONIVA [Concomitant]
  17. IMITREX [Concomitant]
     Route: 048
  18. ZOFRAN [Concomitant]

REACTIONS (4)
  - PRODUCT QUALITY ISSUE [None]
  - DRUG INEFFECTIVE [None]
  - DEVICE FAILURE [None]
  - INJECTION SITE PAIN [None]
